FAERS Safety Report 9117156 (Version 2)
Quarter: 2013Q1

REPORT INFORMATION
  Report Type: Spontaneous
  Country: PH (occurrence: PH)
  Receive Date: 20130225
  Receipt Date: 20130305
  Transmission Date: 20140127
  Serious: Yes (Death, Other)
  Sender: FDA-Public Use
  Company Number: PH-009507513-1302PHL009255

PATIENT
  Age: 54 Year
  Sex: Female

DRUGS (1)
  1. COZAAR [Suspect]
     Dosage: 1 DF, QD
     Route: 048

REACTIONS (2)
  - Coma [Fatal]
  - Meningitis bacterial [Fatal]
